FAERS Safety Report 17246918 (Version 2)
Quarter: 2021Q1

REPORT INFORMATION
  Report Type: Spontaneous
  Country: US (occurrence: US)
  Receive Date: 20200108
  Receipt Date: 20210120
  Transmission Date: 20210419
  Serious: Yes (Death, Hospitalization)
  Sender: FDA-Public Use
  Company Number: US-PFIZER INC-2020004804

PATIENT
  Age: 76 Year
  Sex: Male
  Weight: 113.4 kg

DRUGS (2)
  1. XELJANZ XR [Suspect]
     Active Substance: TOFACITINIB CITRATE
     Indication: PSORIATIC ARTHROPATHY
     Dosage: 11 MG, DAILY
     Route: 048
     Dates: end: 201912
  2. XELJANZ XR [Suspect]
     Active Substance: TOFACITINIB CITRATE
     Indication: RHEUMATOID ARTHRITIS

REACTIONS (3)
  - COVID-19 [Fatal]
  - Renal failure [Fatal]
  - Bronchitis [Recovered/Resolved]

NARRATIVE: CASE EVENT DATE: 201912
